FAERS Safety Report 7950378-7 (Version None)
Quarter: 2011Q4

REPORT INFORMATION
  Report Type: 
  Country: None (occurrence: None)
  Receive Date: 20111130
  Receipt Date: 20111121
  Transmission Date: 20120403
  Serious: Yes (Other)
  Sender: FDA-Public Use
  Company Number: ES-CEPHALON-2011005997

PATIENT
  Age: 52 Year
  Sex: Female

DRUGS (3)
  1. DULOXETINE HYDROCHLORIDE [Concomitant]
  2. OXYCODONE HCL [Concomitant]
     Route: 048
  3. FENTANYL CITRATE [Suspect]
     Indication: BREAKTHROUGH PAIN
     Route: 002

REACTIONS (6)
  - DRUG PRESCRIBING ERROR [None]
  - DRUG DEPENDENCE [None]
  - AGGRESSION [None]
  - COMPULSIVE HOARDING [None]
  - WITHDRAWAL SYNDROME [None]
  - INTENTIONAL DRUG MISUSE [None]
